FAERS Safety Report 10663461 (Version 4)
Quarter: 2016Q2

REPORT INFORMATION
  Report Type: Report from Study
  Country: KR (occurrence: KR)
  Receive Date: 20141219
  Receipt Date: 20160415
  Transmission Date: 20160815
  Serious: Yes (Hospitalization)
  Sender: FDA-Public Use
  Company Number: KR-GILEAD-2014-0126453

PATIENT
  Age: 76 Year
  Sex: Female
  Weight: 54.4 kg

DRUGS (25)
  1. NEXIUM [Concomitant]
     Active Substance: ESOMEPRAZOLE MAGNESIUM
     Dosage: UNK
     Dates: start: 20140410
  2. LASIX [Concomitant]
     Active Substance: FUROSEMIDE
     Dosage: UNK
     Dates: start: 20140409
  3. MOTILIDONE [Concomitant]
     Dosage: UNK
     Dates: start: 20141125
  4. LAMINA-G [Concomitant]
     Dosage: UNK
     Dates: start: 20140409, end: 20141001
  5. RESOLOR [Concomitant]
     Active Substance: PRUCALOPRIDE SUCCINATE
     Dosage: UNK
     Dates: start: 20140509
  6. TRIDOL [Concomitant]
     Dosage: UNK
     Dates: start: 20141105, end: 20141108
  7. MACPERAN [Concomitant]
     Active Substance: METOCLOPRAMIDE HYDROCHLORIDE
     Dosage: UNK
     Dates: start: 20141107, end: 20141107
  8. PHENIRAMIN [Concomitant]
     Dosage: UNK
     Dates: start: 20141107, end: 20141107
  9. ULCERLMIN [Concomitant]
     Active Substance: SUCRALFATE
     Dosage: UNK
     Dates: start: 20140414
  10. MEGACE F [Concomitant]
     Dosage: UNK
     Dates: start: 20141128
  11. VESICARE [Concomitant]
     Active Substance: SOLIFENACIN SUCCINATE
     Dosage: UNK
     Dates: start: 20140711
  12. AGIOCUR                            /00029101/ [Concomitant]
     Dosage: UNK
     Dates: start: 20140610, end: 20141124
  13. LACIDOFIL [Concomitant]
     Active Substance: LACTOBACILLUS ACIDOPHILUS\LACTOBACILLUS RHAMNOSUS
     Dosage: UNK
     Dates: start: 20140509, end: 20141124
  14. SOLETON [Concomitant]
     Active Substance: ZALTOPROFEN
     Dosage: UNK
     Dates: start: 20141105
  15. HARNAL [Concomitant]
     Active Substance: TAMSULOSIN HYDROCHLORIDE
     Dosage: UNK
     Dates: start: 20140711
  16. CIPROCTAN [Concomitant]
     Dosage: UNK
     Dates: start: 20141126, end: 20141202
  17. ACTONEL [Concomitant]
     Active Substance: RISEDRONATE SODIUM
     Dosage: UNK
     Dates: start: 20140922
  18. CYMBALTA [Concomitant]
     Active Substance: DULOXETINE HYDROCHLORIDE
     Dosage: UNK
     Dates: start: 20141106, end: 20141106
  19. RABIET [Concomitant]
     Dosage: UNK
     Dates: start: 20140509, end: 20140915
  20. LIVACT                             /00847901/ [Concomitant]
     Active Substance: ISOLEUCINE\LEUCINE\VALINE
     Dosage: UNK
     Dates: start: 20140417, end: 20140916
  21. MAGNESIUM OXIDE. [Concomitant]
     Active Substance: MAGNESIUM OXIDE
     Dosage: UNK
     Dates: start: 20140923
  22. TENOFOVIR DISOPROXIL FUMARATE. [Suspect]
     Active Substance: TENOFOVIR DISOPROXIL FUMARATE
     Indication: PRODUCT USED FOR UNKNOWN INDICATION
     Dosage: 300 MG, QD
     Route: 048
     Dates: start: 20140412
  23. ALDACTONE [Concomitant]
     Active Substance: SPIRONOLACTONE
     Dosage: UNK
     Dates: start: 20140409
  24. AMINO ACIDS NOS [Concomitant]
     Dosage: UNK
     Dates: start: 20141203, end: 20141203
  25. DUPHALAC [Concomitant]
     Active Substance: LACTULOSE
     Dosage: UNK
     Dates: start: 20140923

REACTIONS (6)
  - Hypophagia [Unknown]
  - Abdominal discomfort [Unknown]
  - Fibromyalgia [Unknown]
  - Constipation [Unknown]
  - Nausea [Unknown]
  - Urinary tract infection [Recovered/Resolved]

NARRATIVE: CASE EVENT DATE: 20141109
